FAERS Safety Report 16346560 (Version 4)
Quarter: 2019Q3

REPORT INFORMATION
  Report Type: Spontaneous
  Country: US (occurrence: US)
  Receive Date: 20190523
  Receipt Date: 20190702
  Transmission Date: 20191004
  Serious: No
  Sender: FDA-Public Use
  Company Number: US-BAYER-2019-094464

PATIENT
  Age: 19 Year
  Sex: Female

DRUGS (3)
  1. DROSPIRENONE + ETHINYLESTRADIOL 20?G [Suspect]
     Active Substance: DROSPIRENONE\ETHINYL ESTRADIOL
     Route: 048
  2. YAZ [Suspect]
     Active Substance: DROSPIRENONE\ETHINYL ESTRADIOL
     Indication: ACNE
  3. YAZ [Suspect]
     Active Substance: DROSPIRENONE\ETHINYL ESTRADIOL
     Indication: PREMENSTRUAL SYNDROME
     Dosage: UNK, QD
     Route: 048
     Dates: start: 201904

REACTIONS (5)
  - Crying [None]
  - Depression [None]
  - Depressed mood [None]
  - Abnormal behaviour [None]
  - Adverse drug reaction [None]

NARRATIVE: CASE EVENT DATE: 201904
